FAERS Safety Report 7834019-5 (Version None)
Quarter: 2011Q4

REPORT INFORMATION
  Report Type: 
  Country: None (occurrence: None)
  Receive Date: 20111020
  Receipt Date: 20111004
  Transmission Date: 20120403
  Serious: Yes (Other)
  Sender: FDA-Public Use
  Company Number: 2011MA014915

PATIENT
  Age: 13 Year
  Sex: Male
  Weight: 36 kg

DRUGS (3)
  1. AMOXICILLIN [Suspect]
     Indication: HERPES ZOSTER OTICUS
  2. ACYCLOVIR [Suspect]
     Indication: HERPES ZOSTER OTICUS
     Dosage: 200 MG; TID; PO
     Route: 048
  3. PREDNISONE TAB [Suspect]
     Indication: HERPES ZOSTER OTICUS
     Dosage: 20 MG; QD; PO
     Route: 048

REACTIONS (4)
  - DRUG PRESCRIBING ERROR [None]
  - INCORRECT DOSE ADMINISTERED [None]
  - INCORRECT DRUG ADMINISTRATION DURATION [None]
  - HERPES ZOSTER OTICUS [None]
